FAERS Safety Report 14702624 (Version 2)
Quarter: 2018Q2

REPORT INFORMATION
  Report Type: Report from Study
  Country: None (occurrence: CA)
  Receive Date: 20180402
  Receipt Date: 20180417
  Transmission Date: 20180711
  Serious: Yes (Other)
  Sender: FDA-Public Use
  Company Number: CA-ABBVIE-18K-028-2303691-00

PATIENT
  Age: 25 Year
  Sex: Male

DRUGS (1)
  1. HUMIRA [Suspect]
     Active Substance: ADALIMUMAB
     Indication: ANKYLOSING SPONDYLITIS
     Route: 058
     Dates: start: 20180326

REACTIONS (6)
  - Pulse abnormal [Unknown]
  - Oxygen saturation abnormal [Unknown]
  - Hyperhidrosis [Recovered/Resolved]
  - Seizure [Recovered/Resolved with Sequelae]
  - Presyncope [Recovered/Resolved with Sequelae]
  - Blood pressure abnormal [Unknown]

NARRATIVE: CASE EVENT DATE: 20180326
